FAERS Safety Report 6720103-6 (Version None)
Quarter: 2010Q2

REPORT INFORMATION
  Report Type: 
  Country: None (occurrence: None)
  Receive Date: 20100511
  Receipt Date: 20100503
  Transmission Date: 20101027
  Serious: Yes (Other)
  Sender: FDA-Public Use
  Company Number: US-RB-018298-09

PATIENT
  Sex: Male

DRUGS (4)
  1. SUBOXONE [Suspect]
     Dosage: DOSING INFORMATION UNKNOWN.
     Route: 060
  2. SUBOXONE [Suspect]
     Route: 060
     Dates: end: 20091201
  3. BENZODIAZEPINE [Suspect]
     Indication: DRUG DEPENDENCE
     Dosage: DOSING DETAILS UNKNOWN
     Route: 065
  4. ALCOHOL [Suspect]
     Indication: DRUG USE FOR UNKNOWN INDICATION
     Dosage: UNKNOWN DOSING DETAILS
     Route: 065

REACTIONS (1)
  - CONVULSION [None]
